FAERS Safety Report 16317544 (Version 2)
Quarter: 2019Q3

REPORT INFORMATION
  Report Type: Report from Study
  Country: US (occurrence: US)
  Receive Date: 20190516
  Receipt Date: 20190821
  Transmission Date: 20191004
  Serious: Yes (Hospitalization)
  Sender: FDA-Public Use
  Company Number: US-EMD SERONO-9090899

PATIENT
  Age: 60 Year
  Sex: Female

DRUGS (1)
  1. REBIF [Suspect]
     Active Substance: INTERFERON BETA-1A
     Indication: MULTIPLE SCLEROSIS
     Dosage: REBIF PREFILLED SYRINGE.
     Route: 058
     Dates: start: 20180406

REACTIONS (4)
  - Skin ulcer [Recovering/Resolving]
  - Insomnia [Unknown]
  - Blister rupture [Unknown]
  - Vascular occlusion [Recovering/Resolving]

NARRATIVE: CASE EVENT DATE: 201905
